FAERS Safety Report 6235987-8 (Version None)
Quarter: 2009Q2

REPORT INFORMATION
  Report Type: 
  Country: None (occurrence: None)
  Receive Date: 20090619
  Receipt Date: 20090608
  Transmission Date: 20091009
  Serious: Yes (Other)
  Sender: FDA-Public Use
  Company Number: US-JNJFOC-20090403265

PATIENT
  Sex: Male
  Weight: 117.94 kg

DRUGS (4)
  1. REMICADE [Suspect]
     Route: 042
  2. REMICADE [Suspect]
     Route: 042
  3. REMICADE [Suspect]
     Indication: PSORIASIS
     Route: 042
  4. TRIAMCINOLONE [Concomitant]

REACTIONS (12)
  - ABDOMINAL PAIN [None]
  - CHEST DISCOMFORT [None]
  - DYSPHAGIA [None]
  - DYSPNOEA [None]
  - FEELING ABNORMAL [None]
  - FLUSHING [None]
  - INFUSION RELATED REACTION [None]
  - LOCAL SWELLING [None]
  - MUSCULOSKELETAL PAIN [None]
  - NECK PAIN [None]
  - SWELLING FACE [None]
  - SWOLLEN TONGUE [None]
